APPROVED DRUG PRODUCT: NOCDURNA
Active Ingredient: DESMOPRESSIN ACETATE
Strength: 0.0553MG
Dosage Form/Route: TABLET;SUBLINGUAL
Application: N022517 | Product #002
Applicant: FERRING PHARMACEUTICALS INC
Approved: Jun 21, 2018 | RLD: Yes | RS: No | Type: DISCN

PATENTS:
Patent 9974826 | Expires: Apr 13, 2030
Patent 11963995 | Expires: May 21, 2029
Patent 10137167 | Expires: May 21, 2029